FAERS Safety Report 8236161 (Version 2)
Quarter: 2014Q1

REPORT INFORMATION
  Report Type: Spontaneous
  Country: US (occurrence: US)
  Receive Date: 20111108
  Receipt Date: 20140218
  Transmission Date: 20141002
  Serious: Yes (Other)
  Sender: FDA-Public Use
  Company Number: US-ASTRAZENECA-2011SE65398

PATIENT
  Age: 38 Year
  Sex: Male
  Weight: 131.5 kg

DRUGS (4)
  1. NEXIUM [Suspect]
     Indication: GASTROOESOPHAGEAL REFLUX DISEASE
     Route: 048
     Dates: start: 2008, end: 20140206
  2. CRESTOR [Suspect]
     Indication: BLOOD TRIGLYCERIDES INCREASED
     Route: 048
     Dates: start: 2004, end: 20140206
  3. METHADONE [Concomitant]
     Indication: BACK PAIN
     Route: 048
     Dates: start: 2011
  4. PERCOCET [Concomitant]
     Indication: BACK PAIN
     Dosage: 5/325MG, 10 PILLS DAILY
     Route: 048
     Dates: start: 201102

REACTIONS (5)
  - Pancreatitis acute [Unknown]
  - Pain [Unknown]
  - Sensation of foreign body [Unknown]
  - Dyspepsia [Not Recovered/Not Resolved]
  - Drug dose omission [Not Recovered/Not Resolved]
